FAERS Safety Report 6115309-3 (Version None)
Quarter: 2009Q1

REPORT INFORMATION
  Report Type: 
  Country: None (occurrence: None)
  Receive Date: 20090313
  Receipt Date: 20090303
  Transmission Date: 20090719
  Serious: Yes (Other)
  Sender: FDA-Public Use
  Company Number: GB-ROCHE-618916

PATIENT
  Sex: Female
  Weight: 105 kg

DRUGS (9)
  1. ORLISTAT [Suspect]
     Indication: OBESITY
     Route: 048
     Dates: start: 20080826
  2. OMEPRAZOLE [Concomitant]
     Route: 048
  3. LEVOTHYROXINE SODIUM [Concomitant]
     Indication: HYPOTHYROIDISM
     Route: 048
  4. PAROXETINE HCL [Concomitant]
     Indication: DEPRESSION
     Dosage: OTHER INDICATON: MUSCLE RELAXANT
     Route: 048
  5. ARTHROTEC [Concomitant]
     Indication: INFLAMMATION
     Route: 048
  6. TRAMADOL HCL [Concomitant]
     Indication: ANALGESIC THERAPY
     Route: 048
  7. PARACETAMOL [Concomitant]
     Indication: ANALGESIC THERAPY
     Dosage: DOSAGE REGIMEN: 500 MG TWO FOUR TIMES A DAY
     Route: 048
  8. CODEINE [Concomitant]
     Indication: ANALGESIC THERAPY
     Route: 048
  9. AMITRIPTYLINE [Concomitant]
     Route: 048

REACTIONS (1)
  - DIVERTICULITIS [None]
